FAERS Safety Report 16037553 (Version 1)
Quarter: 2019Q1

REPORT INFORMATION
  Report Type: Spontaneous
  Country: US (occurrence: US)
  Receive Date: 20190305
  Receipt Date: 20190305
  Transmission Date: 20190418
  Serious: No
  Sender: FDA-Public Use
  Company Number: US-IMPAX LABORATORIES, LLC-2018-IPXL-03855

PATIENT
  Age: 85 Year
  Sex: Male

DRUGS (1)
  1. RYTARY [Suspect]
     Active Substance: CARBIDOPA\LEVODOPA
     Indication: PRODUCT USED FOR UNKNOWN INDICATION
     Dosage: 61.25/245 MG, 11 CAP PER DAY (2 CAP EVERY 3 HRS AT 6 AM, 9 AM, 12 NOON, 3 PM, 6 PM, 1 CAP AT 9 PM)
     Route: 065

REACTIONS (4)
  - Memory impairment [Unknown]
  - Overdose [Unknown]
  - Parkinson^s disease [Unknown]
  - Disturbance in attention [Unknown]
